FAERS Safety Report 21487909 (Version 3)
Quarter: 2023Q2

REPORT INFORMATION
  Report Type: Spontaneous
  Country: JP (occurrence: JP)
  Receive Date: 20221020
  Receipt Date: 20230406
  Transmission Date: 20230722
  Serious: Yes (Hospitalization)
  Sender: FDA-Public Use
  Company Number: JP-Eisai-202209295_LEN_P_1

PATIENT
  Sex: Female

DRUGS (2)
  1. LENVIMA [Suspect]
     Active Substance: LENVATINIB
     Indication: Thyroid cancer
     Route: 048
     Dates: end: 20230223
  2. LENVIMA [Suspect]
     Active Substance: LENVATINIB
     Dosage: DOSE DECREASED (DOSE AND FREQUENCY UNKNOWN)
     Route: 048
     Dates: start: 20230224

REACTIONS (4)
  - Taste disorder [Unknown]
  - Hypertension [Unknown]
  - Malaise [Unknown]
  - Stomatitis [Unknown]

NARRATIVE: CASE EVENT DATE: 20221011
